FAERS Safety Report 5575539-6 (Version None)
Quarter: 2007Q4

REPORT INFORMATION
  Report Type: 
  Country: None (occurrence: None)
  Receive Date: 20071227
  Receipt Date: 20071221
  Transmission Date: 20080405
  Serious: Yes (Hospitalization)
  Sender: FDA-Public Use
  Company Number: FR-MERCK-0712FRA00094

PATIENT
  Age: 49 Year
  Sex: Male
  Weight: 74 kg

DRUGS (3)
  1. ZOCOR [Suspect]
     Indication: HYPERCHOLESTEROLAEMIA
     Route: 048
     Dates: start: 20071020, end: 20071109
  2. METRONIDAZOLE [Suspect]
     Indication: ABDOMINAL WALL ABSCESS
     Route: 042
     Dates: start: 20071104, end: 20071109
  3. OFLOXACIN [Concomitant]
     Indication: SALMONELLOSIS
     Route: 048
     Dates: start: 20071023

REACTIONS (1)
  - GUILLAIN-BARRE SYNDROME [None]
